FAERS Safety Report 20225122 (Version 1)
Quarter: 2021Q4

REPORT INFORMATION
  Report Type: Report from Study
  Country: JP (occurrence: JP)
  Receive Date: 20211223
  Receipt Date: 20211223
  Transmission Date: 20220303
  Serious: Yes (Other)
  Sender: FDA-Public Use
  Company Number: JP-BIOGEN-2019BI00802013

PATIENT
  Age: 5 Year
  Sex: Female
  Weight: 11.1 kg

DRUGS (18)
  1. SPINRAZA [Suspect]
     Active Substance: NUSINERSEN
     Indication: Spinal muscular atrophy
     Route: 065
     Dates: start: 20190828, end: 20190828
  2. SPINRAZA [Suspect]
     Active Substance: NUSINERSEN
     Route: 065
     Dates: start: 20190911, end: 20190911
  3. SPINRAZA [Suspect]
     Active Substance: NUSINERSEN
     Route: 065
     Dates: start: 20190925, end: 20190925
  4. SPINRAZA [Suspect]
     Active Substance: NUSINERSEN
     Route: 065
     Dates: start: 20191030, end: 20191030
  5. SPINRAZA [Suspect]
     Active Substance: NUSINERSEN
     Route: 037
     Dates: start: 20200219
  6. HERBALS [Suspect]
     Active Substance: HERBALS
     Indication: Epilepsy
     Route: 050
     Dates: start: 20210325, end: 20210511
  7. LEVETIRACETAM [Suspect]
     Active Substance: LEVETIRACETAM
     Indication: Epilepsy
     Dosage: 100 MG-200 MG/ DAY
     Route: 050
     Dates: start: 20210326, end: 20210511
  8. THIAMYLAL SODIUM [Concomitant]
     Active Substance: THIAMYLAL SODIUM
     Indication: Sedation
     Route: 042
     Dates: start: 20190828
  9. THIAMYLAL SODIUM [Concomitant]
     Active Substance: THIAMYLAL SODIUM
     Route: 042
     Dates: start: 20190911, end: 20191030
  10. THIAMYLAL SODIUM [Concomitant]
     Active Substance: THIAMYLAL SODIUM
     Dosage: 25-75 MG/DAY
     Route: 042
     Dates: start: 20200219
  11. THIAMYLAL SODIUM [Concomitant]
     Active Substance: THIAMYLAL SODIUM
     Route: 042
     Dates: start: 20210203, end: 20210609
  12. CARBOCYSTEINE [Concomitant]
     Active Substance: CARBOCYSTEINE
     Indication: Chronic respiratory failure
     Route: 050
  13. AMBROXOL HYDROCHLORIDE [Concomitant]
     Active Substance: AMBROXOL HYDROCHLORIDE
     Indication: Chronic respiratory failure
     Route: 050
  14. PRANLUKAST [Concomitant]
     Active Substance: PRANLUKAST
     Indication: Chronic respiratory failure
     Route: 050
  15. ALFAROL [Concomitant]
     Active Substance: ALFACALCIDOL
     Indication: Osteoporosis
     Route: 050
  16. POTASSIUM CHLORIDE\SODIUM CHLORIDE\SODIUM LACTATE [Concomitant]
     Active Substance: POTASSIUM CHLORIDE\SODIUM CHLORIDE\SODIUM LACTATE
     Indication: Prophylaxis against dehydration
     Route: 050
  17. HERBALS [Concomitant]
     Active Substance: HERBALS
     Indication: Constipation
     Route: 050
  18. LIDOCAINE [Concomitant]
     Active Substance: LIDOCAINE
     Route: 061
     Dates: start: 20210203, end: 20210609

REACTIONS (3)
  - Epilepsy [Recovered/Resolved]
  - Hepatic function abnormal [Not Recovered/Not Resolved]
  - Sinus tachycardia [Unknown]

NARRATIVE: CASE EVENT DATE: 20210325
